FAERS Safety Report 7794601-0 (Version None)
Quarter: 2011Q4

REPORT INFORMATION
  Report Type: 
  Country: None (occurrence: None)
  Receive Date: 20111004
  Receipt Date: 20110926
  Transmission Date: 20120403
  Serious: Yes (Other)
  Sender: FDA-Public Use
  Company Number: US-TYCO HEALTHCARE/MALLINCKRODT-T201101851

PATIENT
  Sex: Female

DRUGS (6)
  1. THYROID MEDICATION, GENERIC [Concomitant]
     Dosage: UNK
  2. VITAMIN A                          /00056001/ [Concomitant]
     Dosage: UNK
  3. CAPOCEN [Concomitant]
     Dosage: UNK
  4. CALCIUM CARBONATE [Concomitant]
     Dosage: UNK
  5. PENNSAID [Suspect]
     Indication: BURSITIS
     Dosage: 4 DROPS ONCE A DAY
     Route: 061
     Dates: start: 20110913
  6. GENERIC STATIN [Concomitant]
     Dosage: UNK

REACTIONS (4)
  - COUGH [None]
  - THROAT TIGHTNESS [None]
  - DYSPNOEA [None]
  - SNEEZING [None]
